FAERS Safety Report 11365446 (Version 4)
Quarter: 2015Q3

REPORT INFORMATION
  Report Type: Spontaneous
  Country: JP (occurrence: JP)
  Receive Date: 20150811
  Receipt Date: 20150914
  Transmission Date: 20151125
  Serious: Yes (Hospitalization, Other)
  Sender: FDA-Public Use
  Company Number: JP-UCBSA-2015024857

PATIENT
  Age: 37 Year
  Sex: Female

DRUGS (8)
  1. KEPPRA [Suspect]
     Active Substance: LEVETIRACETAM
     Indication: EPILEPSY
     Dosage: 1000 MG, ONCE DAILY (QD)
     Route: 048
     Dates: start: 20150617, end: 20150629
  2. LAMICTAL [Concomitant]
     Active Substance: LAMOTRIGINE
     Indication: PRODUCT USED FOR UNKNOWN INDICATION
     Dosage: DAILY DOSE: 150 MG
     Route: 048
     Dates: start: 20120317
  3. ALEVIATIN [Concomitant]
     Active Substance: PHENYTOIN SODIUM
     Dosage: DOSE REDUCED
     Route: 048
     Dates: start: 20150617, end: 2015
  4. DIAZEPAM. [Concomitant]
     Active Substance: DIAZEPAM
     Indication: PRODUCT USED FOR UNKNOWN INDICATION
     Dosage: 5 MG DAILY
     Route: 048
     Dates: start: 20120317
  5. KEPPRA [Suspect]
     Active Substance: LEVETIRACETAM
     Dosage: 2000 MG, ONCE DAILY (QD)
     Route: 048
     Dates: start: 20150630, end: 20150702
  6. ZYPREXA [Concomitant]
     Active Substance: OLANZAPINE
     Indication: PRODUCT USED FOR UNKNOWN INDICATION
     Dosage: DAILY DOSE: 5 MG
     Route: 048
     Dates: start: 20120317
  7. ALEVIATIN [Concomitant]
     Active Substance: PHENYTOIN SODIUM
     Dosage: DOSE INCREASED
     Route: 048
     Dates: start: 201507
  8. ALEVIATIN [Concomitant]
     Active Substance: PHENYTOIN SODIUM
     Indication: PRODUCT USED FOR UNKNOWN INDICATION
     Dosage: DAILY DOSE: 100 MG
     Route: 048
     Dates: start: 20120317

REACTIONS (2)
  - Epilepsy [Recovered/Resolved]
  - Disinhibition [Unknown]

NARRATIVE: CASE EVENT DATE: 201507
